FAERS Safety Report 23352710 (Version 1)
Quarter: 2023Q4

REPORT INFORMATION
  Report Type: Spontaneous
  Country: US (occurrence: US)
  Receive Date: 20231230
  Receipt Date: 20231230
  Transmission Date: 20240110
  Serious: No
  Sender: FDA-Public Use
  Company Number: US-PURACAP-US-2023EPCSPO01861

PATIENT
  Age: 60 Year
  Sex: Male
  Weight: 81.6 kg

DRUGS (1)
  1. OMEGA-3-ACID ETHYL ESTERS [Suspect]
     Active Substance: OMEGA-3-ACID ETHYL ESTERS
     Indication: Blood triglycerides
     Dosage: 4 CAPSULES (4 GRAMS IN 1 DAY)
     Route: 048
     Dates: start: 20231216, end: 20231216

REACTIONS (5)
  - Nausea [Recovering/Resolving]
  - Diarrhoea [Recovering/Resolving]
  - Eructation [Recovering/Resolving]
  - Product colour issue [Unknown]
  - Product substitution issue [Unknown]

NARRATIVE: CASE EVENT DATE: 20231216
